FAERS Safety Report 10580229 (Version 3)
Quarter: 2015Q2

REPORT INFORMATION
  Report Type: Report from Study
  Country: US (occurrence: US)
  Receive Date: 20141112
  Receipt Date: 20150505
  Transmission Date: 20150821
  Serious: Yes (Hospitalization, Other)
  Sender: FDA-Public Use
  Company Number: US-ABBVIE-14P-163-1305859-00

PATIENT
  Sex: Male
  Weight: 10.44 kg

DRUGS (2)
  1. HUMIRA [Suspect]
     Active Substance: ADALIMUMAB
     Route: 063
  2. HUMIRA [Suspect]
     Active Substance: ADALIMUMAB
     Indication: MATERNAL EXPOSURE TIMING UNSPECIFIED
     Route: 064

REACTIONS (11)
  - Developmental delay [Not Recovered/Not Resolved]
  - Motor developmental delay [Recovered/Resolved]
  - Developmental delay [Not Recovered/Not Resolved]
  - Gross motor delay [Not Recovered/Not Resolved]
  - Dyspnoea [Recovered/Resolved]
  - Foetal exposure during pregnancy [Unknown]
  - Acoustic stimulation tests abnormal [Not Recovered/Not Resolved]
  - Aspiration [Recovered/Resolved]
  - Exposure during breast feeding [Recovered/Resolved]
  - Otitis media [Unknown]
  - Hypotonia [Not Recovered/Not Resolved]

NARRATIVE: CASE EVENT DATE: 201311
